FAERS Safety Report 9461687 (Version 1)
Quarter: 2013Q3

REPORT INFORMATION
  Report Type: Spontaneous
  Country: US (occurrence: None)
  Receive Date: 20130815
  Receipt Date: 20130815
  Transmission Date: 20140515
  Serious: Yes (Disabling)
  Sender: FDA-Public Use
  Company Number: None

PATIENT
  Age: 27 Year
  Sex: Female
  Weight: 83.92 kg

DRUGS (1)
  1. NORDETTE [Suspect]
     Indication: CONTRACEPTION
     Dates: start: 20100714, end: 20100814

REACTIONS (2)
  - Pain in extremity [None]
  - Pulmonary embolism [None]
